FAERS Safety Report 6883871-9 (Version None)
Quarter: 2010Q3

REPORT INFORMATION
  Report Type: 
  Country: None (occurrence: None)
  Receive Date: 20100729
  Receipt Date: 20100722
  Transmission Date: 20110219
  Serious: Yes (Death, Hospitalization)
  Sender: FDA-Public Use
  Company Number: DE-BRISTOL-MYERS SQUIBB COMPANY-15203995

PATIENT
  Age: 69 Year
  Sex: Female

DRUGS (61)
  1. ORENCIA [Suspect]
     Dosage: ON 20OCT09: ABATACEPT INF AT 750MG
     Route: 042
     Dates: start: 20090901
  2. PREDNISOLONE [Suspect]
  3. ROCEPHIN [Concomitant]
     Route: 042
  4. CLEXANE [Concomitant]
     Indication: THROMBOSIS PROPHYLAXIS
     Route: 058
  5. AMITRIPTYLINE HCL [Concomitant]
  6. MEROPENEM [Concomitant]
     Indication: ANTIBIOTIC THERAPY
  7. DIOVAN HCT [Concomitant]
     Dosage: 1 DF:160/12.5MG
  8. OMEPRAZOLE [Concomitant]
  9. GENTAMICIN [Concomitant]
     Indication: ANTIBIOTIC THERAPY
  10. VALORON [Concomitant]
     Dosage: DOSAGE:200MG RETARD
  11. CELEBREX [Concomitant]
  12. CALCIUM + VITAMIN D [Concomitant]
  13. MESALAMINE [Concomitant]
  14. SAB SIMPLEX [Concomitant]
  15. LAXOBERAL [Concomitant]
     Dosage: 1 DF:12GTT.
  16. ARTELAC [Concomitant]
     Dosage: EYEDROPS
  17. LACRIGEL [Concomitant]
  18. OMEPRAZOLE [Concomitant]
     Dosage: DOSAGE:2/DAY AMPULES,FORMLATION:40
     Route: 042
  19. INSULIN HUMAN [Concomitant]
     Dosage: 40 ML = 2UNIT/HR
     Dates: start: 20091202, end: 20091204
  20. MEROPENEM [Concomitant]
     Route: 042
  21. VANCOMYCIN HCL [Concomitant]
     Indication: ANTIBIOTIC THERAPY
     Route: 042
  22. FUROSEMIDE [Concomitant]
     Dosage: DOSAGE:20MG,2/DAY
     Route: 042
  23. NAFTIDROFURYL HYDROGEN OXALATE [Concomitant]
  24. TRACUTIL [Concomitant]
     Dates: start: 20091203, end: 20091203
  25. RINGERS SOLUTION, LACTATED [Concomitant]
  26. COMBID [Concomitant]
  27. VALSARTAN  AND HYDROCHLOROTHIAZIDE [Concomitant]
     Dosage: FORMULATION:TABS,FORMULATION:160/12.5
  28. LERCANIDIPINE [Concomitant]
     Dosage: TABS
  29. TILIDINE [Concomitant]
     Dosage: 100 RETARD
  30. CERNEVIT-12 [Concomitant]
     Dates: start: 20091202
  31. METOPROLOL SUCCINATE [Concomitant]
     Dosage: TABS
     Route: 042
  32. KONAKION [Concomitant]
     Route: 042
     Dates: start: 20091202, end: 20091203
  33. TORSEMIDE [Concomitant]
     Dosage: TABS,FORMULATION:TABS
  34. LONOLOX [Concomitant]
     Dosage: TABLET,FORMULATION:5
  35. DIGITOXIN [Concomitant]
     Dosage: TABS,FORMULATION:0.07
  36. LACTULOSE [Concomitant]
     Dosage: TABLESPOONS
  37. ESCITALOPRAM [Concomitant]
     Dosage: TABS,FORMULATION:10
  38. POLYSPECTRAN [Concomitant]
     Route: 046
  39. CALCIUM CARBONATE [Concomitant]
  40. NUTRISON MULTIFIBRE [Concomitant]
     Dosage: FEEDING TUBE
  41. PANTOPRAZOLE [Concomitant]
     Dosage: NA45,TABS
     Route: 042
  42. ROXITHROMYCIN [Concomitant]
     Dosage: FORMULATION:150
     Dates: end: 20091110
  43. ROCEPHIN [Concomitant]
     Route: 042
     Dates: end: 20091109
  44. CANDIO-HERMAL [Concomitant]
  45. ACYCLOVIR [Concomitant]
     Route: 042
     Dates: end: 20091111
  46. VANCOMYCIN [Concomitant]
     Dosage: 1 DF= 0 1 0 0 0 G INFUS
  47. SODIUM CHLORIDE 0.9% [Concomitant]
     Dosage: DOSAGE:AEROSOL
     Route: 042
  48. NOVALGIN [Concomitant]
     Dosage: 1 DF=1000 2000 1000 1000 1000
  49. LACRIGEL [Concomitant]
     Dosage: GEL IN BOTH EYES
  50. ARTELAC [Concomitant]
     Dosage: DROPS ON BOTH SIDES
  51. KALINOR [Concomitant]
     Dosage: EFFEVESCENT TABS
  52. MEROPENEM [Concomitant]
  53. ASPIRIN [Concomitant]
     Route: 042
  54. LORAZEPAM [Concomitant]
     Dosage: 1 DF= 0.5 MG
     Route: 042
  55. MUCOSOLVAN [Concomitant]
     Route: 042
  56. LORAZEPAM [Concomitant]
     Dosage: INJEK
     Route: 042
  57. MUCOSOLVAN [Concomitant]
     Dosage: 1 DF= 15 15 0 0 0 MG
     Route: 042
  58. DEXTROSE [Concomitant]
     Dosage: STOPPED03DEC09,THEN03DEC09-3DEC09,
     Dates: start: 20091202, end: 20091203
  59. CERNEVIT-12 [Concomitant]
     Dates: start: 20091202, end: 20091203
  60. AMINO ACID + ELECTROLYTES [Concomitant]
     Dosage: 500 ML FROM 03-DEC-2009 AT 0:00H UNTIL 12.00 A.M
     Dates: start: 20091203
  61. LIPIDS [Concomitant]
     Dosage: 250 ML FROM 02-DEC-2009 AT 12.00 A.M. UNTIL 03-DEC-2009 12.00 A.M.
     Dates: start: 20091202, end: 20091203

REACTIONS (8)
  - ATRIAL FIBRILLATION [None]
  - ENCEPHALITIS [None]
  - ENDOCARDITIS [None]
  - MULTI-ORGAN FAILURE [None]
  - RHEUMATOID ARTHRITIS [None]
  - SEPSIS [None]
  - SYSTEMIC INFLAMMATORY RESPONSE SYNDROME [None]
  - VASCULITIS [None]
